FAERS Safety Report 24031449 (Version 1)
Quarter: 2024Q2

REPORT INFORMATION
  Report Type: Spontaneous
  Country: US (occurrence: US)
  Receive Date: 20240629
  Receipt Date: 20240629
  Transmission Date: 20240716
  Serious: Yes (Hospitalization, Other)
  Sender: FDA-Public Use
  Company Number: US-GLAXOSMITHKLINE-US2024GSK080187

PATIENT

DRUGS (3)
  1. BUPROPION [Suspect]
     Active Substance: BUPROPION\BUPROPION HYDROCHLORIDE
     Indication: Major depression
     Dosage: 100 MG, BID
  2. BUPROPION [Suspect]
     Active Substance: BUPROPION\BUPROPION HYDROCHLORIDE
     Dosage: 100 MG, BID
  3. TRAZODONE [Concomitant]
     Active Substance: TRAZODONE HYDROCHLORIDE
     Indication: Insomnia
     Dosage: 150 MG, 1D

REACTIONS (10)
  - Condition aggravated [Recovering/Resolving]
  - Anger [Recovering/Resolving]
  - Emotional disorder [Recovering/Resolving]
  - Aggression [Unknown]
  - Abnormal behaviour [Recovering/Resolving]
  - Inappropriate affect [Recovering/Resolving]
  - Daydreaming [Recovering/Resolving]
  - Staring [Recovering/Resolving]
  - Screaming [Recovering/Resolving]
  - Psychotic symptom [Recovering/Resolving]
